FAERS Safety Report 10576049 (Version 1)
Quarter: 2014Q4

REPORT INFORMATION
  Report Type: Spontaneous
  Country: US (occurrence: None)
  Receive Date: 20141110
  Receipt Date: 20141110
  Transmission Date: 20150529
  Serious: Yes (Hospitalization)
  Sender: FDA-Public Use
  Company Number: None

PATIENT
  Age: 77 Year
  Sex: Male

DRUGS (1)
  1. INLYTA [Suspect]
     Active Substance: AXITINIB
     Indication: RENAL CANCER
     Route: 048
     Dates: start: 20140815, end: 20140904

REACTIONS (5)
  - Dizziness [None]
  - Diarrhoea [None]
  - Vomiting [None]
  - Dehydration [None]
  - Asthenia [None]

NARRATIVE: CASE EVENT DATE: 20140905
